FAERS Safety Report 14165362 (Version 1)
Quarter: 2017Q4

REPORT INFORMATION
  Report Type: Spontaneous
  Country: FI (occurrence: FI)
  Receive Date: 20171107
  Receipt Date: 20171107
  Transmission Date: 20180321
  Serious: Yes (Disabling, Other)
  Sender: FDA-Public Use
  Company Number: FI-GLAXOSMITHKLINE-FI2017GSK169515

PATIENT
  Sex: Male

DRUGS (6)
  1. AVANDAMET [Suspect]
     Active Substance: METFORMIN HYDROCHLORIDE\ROSIGLITAZONE MALEATE
     Indication: TYPE 2 DIABETES MELLITUS
     Dosage: 2 DF, 1D
     Route: 048
     Dates: start: 20080127, end: 20080928
  2. CARDACE [Concomitant]
     Active Substance: RAMIPRIL
     Dosage: 10 MG, 1D
     Route: 048
     Dates: start: 2005
  3. HYDREX SEMI [Concomitant]
     Dosage: 50 MG, 1D
     Dates: end: 200809
  4. ARTHRYL [Concomitant]
     Dosage: 1500 MG, 1D
  5. LANZO [Concomitant]
     Dosage: 15 MG, 1D
     Route: 048
  6. DIAPAM [Concomitant]
     Active Substance: DIAZEPAM

REACTIONS (20)
  - Musculoskeletal pain [Recovered/Resolved with Sequelae]
  - Arthralgia [Recovered/Resolved with Sequelae]
  - Pain in extremity [Recovered/Resolved with Sequelae]
  - Fluid retention [Recovered/Resolved with Sequelae]
  - Dyspnoea [Recovered/Resolved with Sequelae]
  - Chest pain [Recovered/Resolved with Sequelae]
  - Abdominal distension [Recovered/Resolved with Sequelae]
  - Flank pain [Recovered/Resolved with Sequelae]
  - Insomnia [Recovered/Resolved with Sequelae]
  - Joint swelling [Recovered/Resolved with Sequelae]
  - Chest discomfort [Recovered/Resolved with Sequelae]
  - Pyrexia [Recovered/Resolved with Sequelae]
  - Blood uric acid increased [Recovered/Resolved with Sequelae]
  - Anxiety [Recovered/Resolved with Sequelae]
  - Muscle spasms [Recovered/Resolved with Sequelae]
  - Dyspnoea exertional [Recovered/Resolved with Sequelae]
  - Oedema peripheral [Recovered/Resolved with Sequelae]
  - Nasopharyngitis [Recovered/Resolved with Sequelae]
  - Myalgia [Recovered/Resolved with Sequelae]
  - Cardiac failure [Recovered/Resolved with Sequelae]

NARRATIVE: CASE EVENT DATE: 2008
